FAERS Safety Report 8114145 (Version 3)
Quarter: 2012Q4

REPORT INFORMATION
  Report Type: Report from Study
  Country: JP (occurrence: JP)
  Receive Date: 20110831
  Receipt Date: 20120905
  Transmission Date: 20130627
  Serious: Yes (Other)
  Sender: FDA-Public Use
  Company Number: JP-EISAI INC-E7389-01401-SPO-JP

PATIENT
  Age: 41 Year
  Sex: Female
  Weight: 49 kg

DRUGS (4)
  1. HALAVEN [Suspect]
     Indication: BREAST CANCER RECURRENT
     Route: 041
     Dates: start: 20110802, end: 20110802
  2. HALAVEN [Suspect]
     Indication: METASTASES TO LIVER
  3. HALAVEN [Suspect]
     Indication: METASTASES TO BONE
  4. OXYCONTIN [Concomitant]
     Route: 048

REACTIONS (1)
  - Aspartate aminotransferase increased [Recovering/Resolving]
